FAERS Safety Report 21596452 (Version 2)
Quarter: 2022Q4

REPORT INFORMATION
  Report Type: Spontaneous
  Country: US (occurrence: US)
  Receive Date: 20221115
  Receipt Date: 20221117
  Transmission Date: 20230113
  Serious: No
  Sender: FDA-Public Use
  Company Number: US-PFIZER INC-202101352006

PATIENT
  Age: 8 Year
  Sex: Male

DRUGS (3)
  1. XELJANZ [Suspect]
     Active Substance: TOFACITINIB CITRATE
     Indication: Juvenile idiopathic arthritis
     Dosage: 5 MG, DAILY
     Dates: start: 20211008
  2. XELJANZ [Suspect]
     Active Substance: TOFACITINIB CITRATE
     Indication: Alopecia
     Dosage: 7.5 MG, DAILY(5 MG AM, 2.5 MG PM/1 TABLET BY MOUTH MORNING, 0.5 TABLET BY MOUTH EVENING))
  3. XELJANZ [Suspect]
     Active Substance: TOFACITINIB CITRATE
     Indication: Rheumatoid factor negative

REACTIONS (7)
  - Off label use [Unknown]
  - Off label use [Unknown]
  - Off label use [Unknown]
  - Drug effective for unapproved indication [Unknown]
  - Musculoskeletal stiffness [Unknown]
  - Eructation [Unknown]
  - Weight increased [Unknown]
